FAERS Safety Report 11892944 (Version 4)
Quarter: 2020Q2

REPORT INFORMATION
  Report Type: Spontaneous
  Country: US (occurrence: US)
  Receive Date: 20160106
  Receipt Date: 20200511
  Transmission Date: 20200713
  Serious: Yes (Death, Hospitalization)
  Sender: FDA-Public Use
  Company Number: US-JNJFOC-20160100514

PATIENT
  Age: 28 Year
  Sex: Female

DRUGS (2)
  1. XARELTO [Suspect]
     Active Substance: RIVAROXABAN
     Indication: PULMONARY EMBOLISM
     Dosage: VARYING DOSES OF 15 MG TWICE A DAY AND 20 MG ONCE A DAY
     Route: 048
     Dates: start: 20140128, end: 201403
  2. XARELTO [Suspect]
     Active Substance: RIVAROXABAN
     Route: 048
     Dates: end: 20140407

REACTIONS (3)
  - Cardiac failure congestive [Fatal]
  - Gastrointestinal haemorrhage [Recovered/Resolved]
  - Embedded device [Unknown]

NARRATIVE: CASE EVENT DATE: 2014
